FAERS Safety Report 5814507-3 (Version None)
Quarter: 2008Q3

REPORT INFORMATION
  Report Type: 
  Country: None (occurrence: None)
  Receive Date: 20080718
  Receipt Date: 20080707
  Transmission Date: 20090109
  Serious: Yes (Other)
  Sender: FDA-Public Use
  Company Number: US-JNJFOC-20080501605

PATIENT
  Sex: Female
  Weight: 65.32 kg

DRUGS (2)
  1. REMICADE [Suspect]
     Indication: CROHN'S DISEASE
     Route: 042
  2. BONIVA [Concomitant]
     Indication: OSTEOPOROSIS
     Route: 048

REACTIONS (1)
  - OSTEOPOROSIS [None]
